FAERS Safety Report 10973621 (Version 11)
Quarter: 2015Q3

REPORT INFORMATION
  Report Type: Report from Study
  Country: US (occurrence: US)
  Receive Date: 20150401
  Receipt Date: 20150812
  Transmission Date: 20151125
  Serious: Yes (Disabling, Other)
  Sender: FDA-Public Use
  Company Number: US-SA-2015SA004878

PATIENT
  Age: 43 Year
  Sex: Female

DRUGS (2)
  1. AUBAGIO [Suspect]
     Active Substance: TERIFLUNOMIDE
     Indication: MULTIPLE SCLEROSIS
     Dosage: BEFORE BED
     Route: 048
     Dates: start: 20150128, end: 20150624
  2. AUBAGIO [Suspect]
     Active Substance: TERIFLUNOMIDE
     Indication: MULTIPLE SCLEROSIS
     Route: 048
     Dates: start: 20150111

REACTIONS (18)
  - Vision blurred [Not Recovered/Not Resolved]
  - Hypoaesthesia [Recovered/Resolved]
  - Muscular weakness [Unknown]
  - Nuclear magnetic resonance imaging abnormal [Unknown]
  - Balance disorder [Unknown]
  - Headache [Recovered/Resolved]
  - Optic neuritis [Recovering/Resolving]
  - Gait disturbance [Unknown]
  - Activities of daily living impaired [Not Recovered/Not Resolved]
  - Dizziness [Recovering/Resolving]
  - Unevaluable event [Unknown]
  - Multiple sclerosis relapse [Not Recovered/Not Resolved]
  - Central nervous system lesion [Unknown]
  - Fatigue [Not Recovered/Not Resolved]
  - Hypersensitivity [Recovered/Resolved]
  - Asthenia [Unknown]
  - Back pain [Unknown]
  - Impaired driving ability [Unknown]

NARRATIVE: CASE EVENT DATE: 2015
